FAERS Safety Report 7285259-8 (Version None)
Quarter: 2011Q1

REPORT INFORMATION
  Report Type: 
  Country: None (occurrence: None)
  Receive Date: 20110210
  Receipt Date: 20110204
  Transmission Date: 20110831
  Serious: Yes (Other)
  Sender: FDA-Public Use
  Company Number: JP-GENZYME-FLUD-1000704

PATIENT
  Age: 9 Year
  Sex: Female

DRUGS (11)
  1. FLUDARA [Suspect]
     Indication: STEM CELL TRANSPLANT
     Dosage: 180 MG/M2, UNK
     Route: 065
     Dates: start: 20060101, end: 20060101
  2. MELPHALAN [Suspect]
     Dosage: 140 MG/M2, UNK
     Route: 065
     Dates: start: 20070101, end: 20070101
  3. ARA-C [Concomitant]
     Indication: CHEMOTHERAPY
     Dosage: 20 MG/M2, QD
     Route: 042
  4. TACROLIMUS [Concomitant]
     Indication: PROPHYLAXIS AGAINST GRAFT VERSUS HOST DISEASE
     Dosage: UNK
     Route: 065
  5. CYCLOPHOSPHAMIDE [Suspect]
     Indication: STEM CELL TRANSPLANT
     Dosage: 50 MG/KG, UNK
     Route: 065
     Dates: start: 20060101, end: 20060101
  6. THYMOGLOBULIN [Suspect]
     Indication: STEM CELL TRANSPLANT
     Dosage: 20 MG/KG, UNK
     Route: 065
     Dates: start: 20060101, end: 20060101
  7. THYMOGLOBULIN [Suspect]
     Dosage: 10 MG/KG, UNK
     Route: 065
     Dates: start: 20070101, end: 20070101
  8. MELPHALAN [Suspect]
     Indication: STEM CELL TRANSPLANT
     Dosage: 70 MG/M2, UNK
     Route: 065
     Dates: start: 20060101, end: 20060101
  9. ETOPOSIDE [Concomitant]
     Indication: CHEMOTHERAPY
     Dosage: 30 MG/M2, UNK
     Route: 065
  10. FLUDARA [Suspect]
     Dosage: 180 MG/M2, UNK
     Route: 065
     Dates: start: 20070101, end: 20070101
  11. METHOTREXATE [Concomitant]
     Indication: PROPHYLAXIS AGAINST GRAFT VERSUS HOST DISEASE
     Dosage: 7.5 MG/M2, ON DAYS 1, 3, AND 6
     Route: 065

REACTIONS (2)
  - ACUTE GRAFT VERSUS HOST DISEASE [None]
  - TRANSPLANT FAILURE [None]
